FAERS Safety Report 10708740 (Version 1)
Quarter: 2015Q1

REPORT INFORMATION
  Report Type: Spontaneous
  Country: US (occurrence: US)
  Receive Date: 20150113
  Receipt Date: 20150113
  Transmission Date: 20150721
  Serious: No
  Sender: FDA-Public Use
  Company Number: US-PFIZER INC-2015013043

PATIENT
  Age: 51 Year
  Sex: Female
  Weight: 150 kg

DRUGS (3)
  1. GABAPENTIN. [Suspect]
     Active Substance: GABAPENTIN
     Indication: INTERVERTEBRAL DISC INJURY
     Dosage: 800 MG, 3X/DAY
     Route: 048
     Dates: start: 201307
  2. MORPHINE [Concomitant]
     Active Substance: MORPHINE
     Dosage: 15 MG, 2X/DAY
     Route: 048
  3. NORCO [Concomitant]
     Active Substance: ACETAMINOPHEN\HYDROCODONE BITARTRATE
     Indication: PAIN
     Dosage: UNK, AS NEEDED
     Route: 048

REACTIONS (4)
  - Nausea [Not Recovered/Not Resolved]
  - Dyspepsia [Not Recovered/Not Resolved]
  - Neuralgia [Recovered/Resolved]
  - Condition aggravated [Recovered/Resolved]

NARRATIVE: CASE EVENT DATE: 201405
